FAERS Safety Report 24292798 (Version 1)
Quarter: 2024Q3

REPORT INFORMATION
  Report Type: Spontaneous
  Country: US (occurrence: None)
  Receive Date: 20240906
  Receipt Date: 20240906
  Transmission Date: 20241016
  Serious: No
  Sender: DOMPE FARMACEUTICI
  Company Number: US-FARMAPROD-202310-3124

PATIENT
  Sex: Female
  Weight: 68.86 kg

DRUGS (12)
  1. OXERVATE [Suspect]
     Active Substance: CENEGERMIN-BKBJ
     Indication: Neurotrophic keratopathy
     Route: 047
     Dates: start: 20231010
  2. ONDANSETRON [Concomitant]
     Active Substance: ONDANSETRON
  3. OMEPRAZOLE [Concomitant]
     Active Substance: OMEPRAZOLE
  4. ACETAMINOPHEN [Concomitant]
     Active Substance: ACETAMINOPHEN
     Dosage: 650MG/20.3
  5. ANASTROZOLE [Concomitant]
     Active Substance: ANASTROZOLE
  6. PIQRAY [Concomitant]
     Active Substance: ALPELISIB
  7. CAPECITABINE [Concomitant]
     Active Substance: CAPECITABINE
  8. CLARITIN-D NOS [Concomitant]
     Active Substance: LORATADINE\PSEUDOEPHEDRINE SULFATE
  9. VITAMIN C [Concomitant]
     Active Substance: ASCORBIC ACID
  10. VITAMIN B COMPLEX [Concomitant]
     Active Substance: CYANOCOBALAMIN\DEXPANTHENOL\NIACINAMIDE\PYRIDOXINE HYDROCHLORIDE\RIBOFLAVIN 5^-PHOSPHATE SODIUM\THIA
  11. HAIR, SKIN AND NAILS [Concomitant]
  12. MINERALS\VITAMINS [Concomitant]
     Active Substance: MINERALS\VITAMINS

REACTIONS (1)
  - Intentional product misuse [Unknown]
